FAERS Safety Report 7482848-2 (Version None)
Quarter: 2011Q2

REPORT INFORMATION
  Report Type: 
  Country: None (occurrence: None)
  Receive Date: 20110516
  Receipt Date: 20110511
  Transmission Date: 20111010
  Serious: Yes (Other)
  Sender: FDA-Public Use
  Company Number: US-PFIZER INC-2011101251

PATIENT
  Sex: Male

DRUGS (2)
  1. NEURONTIN [Suspect]
     Indication: MIGRAINE
     Dosage: UNK
     Route: 048
  2. NEURONTIN [Suspect]
     Indication: PAIN

REACTIONS (9)
  - DYSGEUSIA [None]
  - ANGER [None]
  - AGITATION [None]
  - DRUG INEFFECTIVE FOR UNAPPROVED INDICATION [None]
  - DEPRESSION [None]
  - THINKING ABNORMAL [None]
  - AMNESIA [None]
  - SUICIDAL IDEATION [None]
  - HOMICIDAL IDEATION [None]
